FAERS Safety Report 6474354-9 (Version None)
Quarter: 2009Q4

REPORT INFORMATION
  Report Type: 
  Country: None (occurrence: None)
  Receive Date: 20091123
  Receipt Date: 20090801
  Transmission Date: 20100525
  Serious: No
  Sender: FDA-Public Use
  Company Number: 8049869

PATIENT
  Sex: Female
  Weight: 113.4 kg

DRUGS (10)
  1. CIMZIA [Suspect]
     Indication: CROHN'S DISEASE
     Dosage: 400 MG SC
     Route: 058
     Dates: start: 20080903
  2. MERCAPTOPURINE [Concomitant]
  3. BENTYL [Concomitant]
  4. VICODIN [Concomitant]
  5. BUSPAR [Concomitant]
  6. PRILOSEC [Concomitant]
  7. PHENERGAN HCL [Concomitant]
  8. POTASSIUM [Concomitant]
  9. TYLENOL (CAPLET) [Concomitant]
  10. BENADRYL [Concomitant]

REACTIONS (9)
  - ABDOMINAL PAIN [None]
  - ARTHRALGIA [None]
  - BREATH SOUNDS ABNORMAL [None]
  - DIARRHOEA [None]
  - INFECTION [None]
  - INTESTINAL ULCER [None]
  - OEDEMA PERIPHERAL [None]
  - RASH GENERALISED [None]
  - VISION BLURRED [None]
